FAERS Safety Report 8587774-3 (Version None)
Quarter: 2012Q3

REPORT INFORMATION
  Report Type: 
  Country: None (occurrence: None)
  Receive Date: 20120813
  Receipt Date: 20120802
  Transmission Date: 20120928
  Serious: Yes (Hospitalization)
  Sender: FDA-Public Use
  Company Number: US-BIOGENIDEC-2011BI013735

PATIENT
  Age: 30 Year
  Sex: Female

DRUGS (1)
  1. TYSABRI [Suspect]
     Indication: MULTIPLE SCLEROSIS
     Route: 042
     Dates: start: 20101028, end: 20110101

REACTIONS (8)
  - IMMUNE SYSTEM DISORDER [None]
  - DEPRESSION [None]
  - AFFECT LABILITY [None]
  - MEMORY IMPAIRMENT [None]
  - ANXIETY [None]
  - MULTIPLE SCLEROSIS RELAPSE [None]
  - MENTAL DISORDER [None]
  - DEPRESSED MOOD [None]
